FAERS Safety Report 18081235 (Version 1)
Quarter: 2020Q3

REPORT INFORMATION
  Report Type: Spontaneous
  Country: CN (occurrence: CN)
  Receive Date: 20200728
  Receipt Date: 20200728
  Transmission Date: 20201103
  Serious: Yes (Life-Threatening, Other)
  Sender: FDA-Public Use
  Company Number: CN-JNJFOC-20200734689

PATIENT
  Age: 89 Year
  Sex: Female
  Weight: 60 kg

DRUGS (5)
  1. XARELTO [Suspect]
     Active Substance: RIVAROXABAN
     Indication: ATRIAL FIBRILLATION
  2. GLUCOBAY [Suspect]
     Active Substance: ACARBOSE
     Indication: TYPE 2 DIABETES MELLITUS
     Dosage: 0.1 G, TID
     Route: 048
     Dates: start: 20200520, end: 20200704
  3. METOPROLOL. [Concomitant]
     Active Substance: METOPROLOL
  4. LIPITOR [Concomitant]
     Active Substance: ATORVASTATIN CALCIUM
  5. XARELTO [Suspect]
     Active Substance: RIVAROXABAN
     Indication: ANTICOAGULANT THERAPY
     Dosage: 10 MG, QD
     Route: 048
     Dates: start: 20190421, end: 20200704

REACTIONS (11)
  - Fall [Unknown]
  - Loss of consciousness [Unknown]
  - Arrhythmia [Unknown]
  - Subarachnoid haemorrhage [Unknown]
  - Areflexia [Unknown]
  - Extensor plantar response [Unknown]
  - Hyperhidrosis [Unknown]
  - Salivary hypersecretion [Unknown]
  - Pupillary reflex impaired [Unknown]
  - Slow response to stimuli [Unknown]
  - Miosis [Unknown]

NARRATIVE: CASE EVENT DATE: 20200704
